FAERS Safety Report 4471058-9 (Version None)
Quarter: 2004Q4

REPORT INFORMATION
  Report Type: 
  Country: None (occurrence: None)
  Receive Date: 20041011
  Receipt Date: 20040929
  Transmission Date: 20050328
  Serious: Yes (Life-Threatening, Hospitalization, Disabling, Other)
  Sender: FDA-Public Use
  Company Number: GB-BRISTOL-MYERS SQUIBB COMPANY-12716288

PATIENT
  Age: 48 Year
  Sex: Female

DRUGS (6)
  1. ABILIFY [Suspect]
     Indication: PSYCHOTIC DISORDER
     Route: 048
     Dates: start: 20040612, end: 20040714
  2. MADOPAR [Concomitant]
  3. ROPINIROLE [Concomitant]
  4. CITALOPRAM [Concomitant]
  5. LORAZEPAM [Concomitant]
  6. THYROXINE [Concomitant]

REACTIONS (1)
  - PARKINSON'S DISEASE [None]
